FAERS Safety Report 7502028-1 (Version None)
Quarter: 2011Q2

REPORT INFORMATION
  Report Type: 
  Country: None (occurrence: None)
  Receive Date: 20110525
  Receipt Date: 20110520
  Transmission Date: 20111010
  Serious: Yes (Death)
  Sender: FDA-Public Use
  Company Number: US-AMGEN-USASP2011021002

PATIENT
  Sex: Male

DRUGS (2)
  1. NPLATE [Suspect]
     Indication: IDIOPATHIC THROMBOCYTOPENIC PURPURA
     Dates: start: 20100507
  2. CORTICOSTEROIDS [Concomitant]
     Dosage: UNK
     Dates: start: 20090615

REACTIONS (1)
  - CEREBROVASCULAR ACCIDENT [None]
